FAERS Safety Report 8670190 (Version 2)
Quarter: 2015Q1

REPORT INFORMATION
  Report Type: Report from Study
  Country: US (occurrence: US)
  Receive Date: 20120718
  Receipt Date: 20150320
  Transmission Date: 20150721
  Serious: Yes (Death)
  Sender: FDA-Public Use
  Company Number: US-ROCHE-1088185

PATIENT
  Sex: Female
  Weight: 43.86 kg

DRUGS (20)
  1. KYTRIL [Concomitant]
     Active Substance: GRANISETRON HYDROCHLORIDE
     Dosage: 20/DEC/2007, 07/NOV/2007, 28/NOV/2007, 26/APR/2010, 12/APR/2010, 13/MAY/2009, 10/JAN/2008,  07/FEB/2
     Route: 042
  2. OXALIPLATIN. [Concomitant]
     Active Substance: OXALIPLATIN
     Route: 042
     Dates: start: 20080110
  3. MAGNESIUM SULPHATE [Concomitant]
     Active Substance: MAGNESIUM SULFATE
     Dosage: 24/MAY/2010, 26/APR/2010, 07/FEB/2008, 28/FEB/2008, 24/MAR/2008, 14/APR/2008
     Route: 042
     Dates: start: 20080110
  4. AVASTIN [Suspect]
     Active Substance: BEVACIZUMAB
     Dosage: 12/APR/2010, 26/APR/2010, 24/MAY/2010
     Route: 042
  5. OXALIPLATIN. [Concomitant]
     Active Substance: OXALIPLATIN
     Dosage: 26/APR/2010
     Route: 042
     Dates: start: 20100412
  6. OXALIPLATIN. [Concomitant]
     Active Substance: OXALIPLATIN
     Dosage: 12/APR/2010
     Route: 042
  7. DEXAMETHASONE. [Concomitant]
     Active Substance: DEXAMETHASONE
     Dosage: 24/MAY/2010, 12/APR/2010
     Route: 042
  8. AVASTIN [Suspect]
     Active Substance: BEVACIZUMAB
     Indication: METASTASES TO LUNG
     Route: 042
     Dates: start: 20090513
  9. XELODA [Suspect]
     Active Substance: CAPECITABINE
     Indication: RECTAL CANCER
  10. RANITIDINE [Concomitant]
     Active Substance: RANITIDINE\RANITIDINE HYDROCHLORIDE
     Dosage: 26/APR/2010
     Route: 042
  11. OXALIPLATIN. [Concomitant]
     Active Substance: OXALIPLATIN
     Dosage: 12/APR/2010
     Route: 042
  12. LEUCOVORIN [Concomitant]
     Active Substance: LEUCOVORIN
     Dosage: 24/MAY/2010, 26/APR/2010, 12/APR/2010
     Route: 042
  13. ALTEPLASE [Concomitant]
     Active Substance: ALTEPLASE
     Dosage: 13/MAY/2009
     Route: 042
  14. DECADRON [Concomitant]
     Active Substance: DEXAMETHASONE
     Dosage: 20/DEC/2007,  07/FEB/2008, 28/FEB/2008, 24/MAR/2008, 14/APR/2008
     Route: 042
  15. DIPHENHYDRAMINE [Concomitant]
     Active Substance: DIPHENHYDRAMINE
     Route: 042
  16. 5-FLUOROURACIL [Concomitant]
     Active Substance: FLUOROURACIL
     Dosage: (380MG INITIALLY AND 2700MG AFTERWARD IN ONE DAY)  24/MAY/2010, 26/APR/2010, 12/APR/2010
     Route: 042
  17. CALCIUM GLUCONATE. [Concomitant]
     Active Substance: CALCIUM GLUCONATE
     Dosage: 24/MAY/2010, 12/APR/2010, 07/FEB/2008, 28/FEB/2008, 24/MAR/2008, 14/APR/2008
     Route: 042
     Dates: start: 20080110
  18. AVASTIN [Suspect]
     Active Substance: BEVACIZUMAB
     Indication: RECTAL CANCER
     Dosage: 07/NOV/2007, 28/NOV/2007, 20/DEC/2007, 10/JAN/2008, 07/FEB/2008, 28/FEB/2008, 24/MAR/2008, 14/APR/20
     Route: 042
  19. XELODA [Suspect]
     Active Substance: CAPECITABINE
     Indication: METASTASES TO LUNG
     Route: 048
  20. OXALIPLATIN. [Concomitant]
     Active Substance: OXALIPLATIN
     Dosage: 07/NOV/2007,  28/NOV/2007, 20/DEC/2007, 10/JAN/2008,  07/FEB/2008, 28/FEB/2008, 24/MAR/2008, 14/APR/
     Route: 042

REACTIONS (5)
  - Death [Fatal]
  - Diarrhoea [Unknown]
  - Pain [Unknown]
  - Fatigue [Unknown]
  - Nausea [Unknown]
